FAERS Safety Report 5707510-5 (Version None)
Quarter: 2008Q2

REPORT INFORMATION
  Report Type: 
  Country: None (occurrence: None)
  Receive Date: 20080416
  Receipt Date: 20080404
  Transmission Date: 20081010
  Serious: Yes (Hospitalization)
  Sender: FDA-Public Use
  Company Number: US-PFIZER INC-2006114007

PATIENT
  Sex: Male
  Weight: 86.6 kg

DRUGS (7)
  1. AG-013,736 [Interacting]
     Indication: RENAL CELL CARCINOMA
     Route: 048
     Dates: start: 20060823, end: 20060907
  2. ZOLOFT [Suspect]
     Dosage: TEXT:100MG DECREASED TO 50MG-FREQ:EVERY DAY
     Route: 048
     Dates: start: 20040101
  3. ZYPREXA [Interacting]
     Dosage: TEXT:15MG DECREASED TO10MG-FREQ:EVERY DAY
     Route: 048
     Dates: start: 20040101
  4. ZINC [Concomitant]
     Dosage: TEXT:1 TAB-FREQ:EVERY DAY
     Route: 048
     Dates: start: 20050101, end: 20060918
  5. CENTRUM [Concomitant]
     Dosage: TEXT:1 TAB-FREQ:EVERY DAY
     Route: 048
     Dates: start: 20040101
  6. TRILEPTAL [Concomitant]
     Route: 048
     Dates: start: 20030101
  7. NORVASC [Concomitant]
     Route: 048
     Dates: start: 20051107

REACTIONS (4)
  - ATAXIA [None]
  - CONFUSIONAL STATE [None]
  - DRUG INTERACTION [None]
  - MENTAL STATUS CHANGES [None]
